FAERS Safety Report 6129798-1 (Version None)
Quarter: 2009Q1

REPORT INFORMATION
  Report Type: 
  Country: None (occurrence: None)
  Receive Date: 20090324
  Receipt Date: 20090312
  Transmission Date: 20090719
  Serious: Yes (Other)
  Sender: FDA-Public Use
  Company Number: JP-ROCHE-616704

PATIENT
  Age: 49 Year
  Sex: Male

DRUGS (4)
  1. CELLCEPT [Suspect]
     Indication: PROPHYLAXIS AGAINST TRANSPLANT REJECTION
     Route: 048
  2. TACROLIMUS HYDRATE [Concomitant]
     Route: 048
  3. MEDROL [Concomitant]
     Route: 048
  4. SIMULECT [Concomitant]
     Dosage: FORM: INJECTABLE; ROUTE: INJECTABLE (NOT OTHERWISE SPECIFIED)
     Route: 050

REACTIONS (5)
  - DISSEMINATED INTRAVASCULAR COAGULATION [None]
  - ENDOCARDITIS [None]
  - MUSCLE ABSCESS [None]
  - PNEUMONIA [None]
  - STAPHYLOCOCCAL SEPSIS [None]
